FAERS Safety Report 18880316 (Version 1)
Quarter: 2021Q1

REPORT INFORMATION
  Report Type: Spontaneous
  Country: US (occurrence: US)
  Receive Date: 20210211
  Receipt Date: 20210211
  Transmission Date: 20210420
  Serious: No
  Sender: FDA-Public Use
  Company Number: US-STRIDES ARCOLAB LIMITED-2020SP015684

PATIENT
  Age: 55 Year

DRUGS (8)
  1. OXYCODONE [Suspect]
     Active Substance: OXYCODONE
     Indication: TRIGEMINAL NERVE DISORDER
     Dosage: 30 MILLIGRAM
     Route: 065
  2. PIMECROLIMUS. [Suspect]
     Active Substance: PIMECROLIMUS
     Indication: TRIGEMINAL NERVE DISORDER
     Dosage: UNK
     Route: 065
  3. GABAPENTIN. [Suspect]
     Active Substance: GABAPENTIN
     Indication: TRIGEMINAL NERVE DISORDER
     Dosage: 900 MILLIGRAM PER DAY
     Route: 065
  4. CLONAZEPAM. [Suspect]
     Active Substance: CLONAZEPAM
     Indication: TRIGEMINAL NERVE DISORDER
     Dosage: 4 MILLIGRAM PER DAY
     Route: 065
  5. LAMOTRIGINE. [Suspect]
     Active Substance: LAMOTRIGINE
     Indication: TRIGEMINAL NERVE DISORDER
     Dosage: 150 MILLIGRAM PER DAY
     Route: 065
  6. AMITRIPTYLINE [Suspect]
     Active Substance: AMITRIPTYLINE
     Indication: TRIGEMINAL NERVE DISORDER
     Dosage: 100 MILLIGRAM
     Route: 065
  7. CYCLOBENZAPRINE. [Suspect]
     Active Substance: CYCLOBENZAPRINE
     Indication: TRIGEMINAL NERVE DISORDER
     Dosage: 20 MILLIGRAM
     Route: 065
  8. CELECOXIB. [Suspect]
     Active Substance: CELECOXIB
     Indication: TRIGEMINAL NERVE DISORDER
     Dosage: 200 MILLIGRAM
     Route: 065

REACTIONS (1)
  - Drug ineffective for unapproved indication [Unknown]
